FAERS Safety Report 9841612 (Version 1)
Quarter: 2014Q1

REPORT INFORMATION
  Report Type: Spontaneous
  Country: US (occurrence: US)
  Receive Date: 20140124
  Receipt Date: 20140124
  Transmission Date: 20141002
  Serious: Yes (Hospitalization)
  Sender: FDA-Public Use
  Company Number: US-CUBIST PHARMACEUTICAL, INC.-2014CBST000039

PATIENT
  Sex: 0

DRUGS (3)
  1. CUBICIN [Suspect]
     Indication: OSTEOMYELITIS
     Dosage: UNK UNK, UNK
     Route: 065
  2. CUBICIN [Suspect]
     Indication: OFF LABEL USE
  3. VANCOMYCIN [Concomitant]
     Indication: OSTEOMYELITIS

REACTIONS (3)
  - Musculoskeletal stiffness [Unknown]
  - Blood creatine phosphokinase increased [Unknown]
  - Myalgia [Unknown]
